FAERS Safety Report 21540255 (Version 1)
Quarter: 2022Q4

REPORT INFORMATION
  Report Type: Other
  Country: IN (occurrence: None)
  Receive Date: 20221102
  Receipt Date: 20221102
  Transmission Date: 20230113
  Serious: Yes (Hospitalization)
  Sender: FDA-Public Use
  Company Number: IN-ROCHE-3209666

PATIENT
  Age: 54 Year
  Sex: Male

DRUGS (6)
  1. MYCOPHENOLATE MOFETIL [Suspect]
     Active Substance: MYCOPHENOLATE MOFETIL
     Indication: Prophylaxis against transplant rejection
     Route: 065
  2. COTRIMOXAZOLE [Suspect]
     Active Substance: SULFAMETHOXAZOLE\TRIMETHOPRIM
     Indication: Product used for unknown indication
     Route: 065
  3. TACROLIMUS [Suspect]
     Active Substance: TACROLIMUS
     Indication: Prophylaxis against transplant rejection
     Route: 065
  4. CARVEDILOL [Concomitant]
     Active Substance: CARVEDILOL
  5. SALINE [Concomitant]
     Active Substance: SODIUM CHLORIDE
     Dosage: 3%
  6. TOLVAPTAN [Concomitant]
     Active Substance: TOLVAPTAN

REACTIONS (5)
  - Disseminated cryptococcosis [Recovered/Resolved]
  - Meningitis cryptococcal [Recovered/Resolved]
  - Inappropriate antidiuretic hormone secretion [Recovered/Resolved]
  - Hyponatraemia [Recovered/Resolved]
  - Metabolic encephalopathy [Recovered/Resolved]
